FAERS Safety Report 25868416 (Version 1)
Quarter: 2025Q4

REPORT INFORMATION
  Report Type: Spontaneous
  Country: EU (occurrence: EU)
  Receive Date: 20251001
  Receipt Date: 20251001
  Transmission Date: 20260117
  Serious: No
  Sender: UCB
  Company Number: EU-UCBSA-2025060905

PATIENT

DRUGS (1)
  1. NEUPRO [Suspect]
     Active Substance: ROTIGOTINE
     Indication: Product used for unknown indication
     Dosage: 3 UNK, UNK
     Route: 062

REACTIONS (1)
  - Product adhesion issue [Unknown]
